FAERS Safety Report 6046595-6 (Version None)
Quarter: 2009Q1

REPORT INFORMATION
  Report Type: 
  Country: None (occurrence: None)
  Receive Date: 20090122
  Receipt Date: 20090113
  Transmission Date: 20090719
  Serious: Yes (Other)
  Sender: FDA-Public Use
  Company Number: PHBS2009US00508

PATIENT

DRUGS (1)
  1. FORADIL [Suspect]

REACTIONS (1)
  - PNEUMONIA [None]
